FAERS Safety Report 7492578-9 (Version None)
Quarter: 2011Q2

REPORT INFORMATION
  Report Type: 
  Country: None (occurrence: None)
  Receive Date: 20110519
  Receipt Date: 20110420
  Transmission Date: 20111010
  Serious: No
  Sender: FDA-Public Use
  Company Number: US-BAYER-2011-035481

PATIENT
  Age: 80 Year
  Sex: Male

DRUGS (9)
  1. GLIPIZIDE [Concomitant]
  2. LISINOPRIL [Concomitant]
  3. ATENOLOL [Concomitant]
  4. ALEVE (CAPLET) [Suspect]
     Indication: ANALGESIC THERAPY
     Dosage: 2 DF, BID
     Route: 048
     Dates: start: 20110419
  5. METFORMIN HCL [Concomitant]
  6. TERAZOSIN HCL [Concomitant]
  7. OMEPRAZOLE [Concomitant]
  8. PRAVASTATIN [Concomitant]
  9. LORAZEPAM [Concomitant]

REACTIONS (2)
  - MYALGIA [None]
  - HEADACHE [None]
